FAERS Safety Report 9989112 (Version 2)
Quarter: 2014Q1

REPORT INFORMATION
  Report Type: Report from Study
  Country: PR (occurrence: PR)
  Receive Date: 20140310
  Receipt Date: 20140310
  Transmission Date: 20141002
  Serious: No
  Sender: FDA-Public Use
  Company Number: PR-ABBVIE-13P-131-1118088-00

PATIENT
  Age: 60 Year
  Sex: Female
  Weight: 59.02 kg

DRUGS (8)
  1. HUMIRA [Suspect]
     Indication: RHEUMATOID ARTHRITIS
     Dosage: 4339
     Route: 058
     Dates: start: 2012, end: 20130610
  2. SYNTHROID [Concomitant]
     Indication: NODULE
     Route: 048
  3. KLONOPIN [Concomitant]
     Indication: SCHIZOPHRENIA
     Dosage: AT NIGHT
     Route: 048
  4. KLONOPIN [Concomitant]
     Indication: SCHIZOPHRENIA
     Route: 048
  5. ULTRACET [Concomitant]
     Indication: PAIN
     Route: 048
  6. METHOTREXATE [Concomitant]
     Indication: RHEUMATOID ARTHRITIS
     Route: 048
  7. FOLIC ACID [Concomitant]
     Indication: VITAMIN SUPPLEMENTATION
     Route: 048
  8. VITAMIN D [Concomitant]
     Indication: VITAMIN SUPPLEMENTATION
     Route: 048

REACTIONS (1)
  - Uterine leiomyoma [Recovering/Resolving]
